FAERS Safety Report 8431507 (Version 3)
Quarter: 2013Q4

REPORT INFORMATION
  Report Type: Report from Study
  Country: DE (occurrence: DE)
  Receive Date: 20120228
  Receipt Date: 20131128
  Transmission Date: 20140711
  Serious: Yes (Death, Other)
  Sender: FDA-Public Use
  Company Number: DE-ROCHE-1041452

PATIENT
  Age: 70 Year
  Sex: Female
  Weight: 79 kg

DRUGS (14)
  1. TOCILIZUMAB [Suspect]
     Indication: RHEUMATOID ARTHRITIS
     Dosage: 8 MG/KG
     Route: 042
     Dates: start: 20110831
  2. VICTOZA [Concomitant]
     Indication: DIABETES MELLITUS
     Route: 058
     Dates: start: 201108
  3. PREDNISOLONE [Concomitant]
     Indication: RHEUMATOID ARTHRITIS
     Route: 048
     Dates: start: 200411
  4. PREDNISOLONE [Concomitant]
     Route: 048
     Dates: start: 200411
  5. PREDNISOLONE [Concomitant]
     Route: 048
     Dates: start: 201109
  6. DICLOFENAC [Concomitant]
     Route: 048
     Dates: start: 201110
  7. PANTOZOL (GERMANY) [Concomitant]
     Route: 048
  8. SPIRO COMP [Concomitant]
     Route: 065
  9. METOPROLOL SUCCINATE [Concomitant]
     Route: 065
  10. LYRICA [Concomitant]
     Route: 065
  11. METFORMIN [Concomitant]
     Route: 065
  12. CYMBALTA [Concomitant]
     Route: 065
  13. FERROSANOL DUODENAL [Concomitant]
     Route: 065
  14. FENTANYL [Concomitant]
     Route: 065

REACTIONS (9)
  - Septic shock [Fatal]
  - Intestinal ischaemia [Fatal]
  - Large intestine perforation [Fatal]
  - Peritonitis [Fatal]
  - Multi-organ failure [Fatal]
  - Cardiac arrest [Fatal]
  - Colitis ischaemic [Unknown]
  - Gangrene [Unknown]
  - Red blood cell count decreased [Unknown]
